FAERS Safety Report 20016582 (Version 1)
Quarter: 2021Q4

REPORT INFORMATION
  Report Type: Spontaneous
  Country: US (occurrence: None)
  Receive Date: 20211104
  Receipt Date: 20211104
  Transmission Date: 20220303
  Serious: No
  Sender: FDA-Public Use
  Company Number: None

PATIENT

DRUGS (2)
  1. TETRAHYDROZOLINE HYDROCHLORIDE [Suspect]
     Active Substance: TETRAHYDROZOLINE HYDROCHLORIDE
     Route: 047
  2. DRY EYE RELIEF [Suspect]
     Active Substance: GLYCERIN\HYPROMELLOSE 2208 (100 MPA.S)\POLYETHYLENE GLYCOL 400
     Route: 047

REACTIONS (6)
  - Product packaging confusion [None]
  - Product label confusion [None]
  - Product label issue [None]
  - Product packaging confusion [None]
  - Product confusion [None]
  - Product storage error [None]
